FAERS Safety Report 16790140 (Version 1)
Quarter: 2019Q3

REPORT INFORMATION
  Report Type: Spontaneous
  Country: US (occurrence: US)
  Receive Date: 20190910
  Receipt Date: 20190910
  Transmission Date: 20191005
  Serious: Yes (Other)
  Sender: FDA-Public Use
  Company Number: US-009507513-1909USA002636

PATIENT
  Age: 58 Year
  Sex: Female

DRUGS (6)
  1. KEYTRUDA [Suspect]
     Active Substance: PEMBROLIZUMAB
     Indication: COLON CANCER METASTATIC
     Dosage: UNK
  2. KEYTRUDA [Suspect]
     Active Substance: PEMBROLIZUMAB
     Indication: MICROSATELLITE INSTABILITY CANCER
  3. NIVOLUMAB [Suspect]
     Active Substance: NIVOLUMAB
     Indication: MICROSATELLITE INSTABILITY CANCER
     Dosage: 3 MILLIGRAM/KILOGRAM, EVERY 2 WEEKS
  4. IPILIMUMAB [Suspect]
     Active Substance: IPILIMUMAB
     Indication: MICROSATELLITE INSTABILITY CANCER
  5. IPILIMUMAB [Suspect]
     Active Substance: IPILIMUMAB
     Indication: COLON CANCER METASTATIC
     Dosage: 1 MILLIGRAM/KILOGRAM, EVERY 6 WEEKS (4 DOSES TOTAL)
  6. NIVOLUMAB [Suspect]
     Active Substance: NIVOLUMAB
     Indication: COLON CANCER METASTATIC
     Dosage: 240 MG (3 MILLIGRAM/KILOGRAM), COMBINED WITH IPILIMUMAB EVERY 6 WEEKS (4 DOSES TOTAL)

REACTIONS (2)
  - Immune-mediated enterocolitis [Recovering/Resolving]
  - Drug ineffective [Unknown]
